FAERS Safety Report 6301140-2 (Version None)
Quarter: 2009Q3

REPORT INFORMATION
  Report Type: 
  Country: None (occurrence: None)
  Receive Date: 20090807
  Receipt Date: 20090729
  Transmission Date: 20100115
  Serious: Yes (Other)
  Sender: FDA-Public Use
  Company Number: DE-PFIZER INC-2009228233

PATIENT
  Age: 22 Year

DRUGS (1)
  1. DEPO-CLINOVIR [Suspect]
     Indication: CONTRACEPTION
     Dosage: 150 MG, EVERY 3 MONTHS
     Route: 030
     Dates: start: 20090430, end: 20090616

REACTIONS (3)
  - BONE PAIN [None]
  - INJECTION SITE ATROPHY [None]
  - INJECTION SITE RASH [None]
